FAERS Safety Report 8928443 (Version 1)
Quarter: 2012Q4

REPORT INFORMATION
  Report Type: Spontaneous
  Country: US (occurrence: None)
  Receive Date: 20121120
  Receipt Date: 20121120
  Transmission Date: 20130627
  Serious: Yes (Hospitalization, Other)
  Sender: FDA-Public Use
  Company Number: TPA2012A01841

PATIENT
  Age: 63 Year
  Sex: Female

DRUGS (6)
  1. ACTOS (PIOGLITAZONE HYDROCHLORIDE) [Suspect]
     Indication: TYPE 2 DIABETES MELLITUS
  2. METFORMIN (METFORMIN) [Concomitant]
  3. GLUCOPHAGE (METFORMIN HYDROCHLORIDE) [Concomitant]
  4. AMARYL (GLIMEPIRIDE) [Concomitant]
  5. JANUVIA (SITAGLIPTIN  PHOSPHATE) [Concomitant]
  6. LANTUS INJECTION SOLOSTAR (INSULIN GLARGINE) [Concomitant]

REACTIONS (1)
  - Renal failure [None]
